FAERS Safety Report 5989267-6 (Version None)
Quarter: 2008Q4

REPORT INFORMATION
  Report Type: 
  Country: None (occurrence: None)
  Receive Date: 20081205
  Receipt Date: 20081202
  Transmission Date: 20090506
  Serious: Yes (Death, Hospitalization, Other)
  Sender: FDA-Public Use
  Company Number: THQ2008A02740

PATIENT
  Sex: Male

DRUGS (1)
  1. LANSOPRAZOLE [Suspect]
     Indication: DYSPEPSIA
     Dosage: 1 TABLET 1 X PER 1 TOT, PER ORAL
     Route: 048
     Dates: start: 20060101, end: 20060101

REACTIONS (7)
  - CHEST PAIN [None]
  - CONCOMITANT DISEASE PROGRESSION [None]
  - DIARRHOEA [None]
  - GASTROINTESTINAL DISORDER [None]
  - GENERAL PHYSICAL HEALTH DETERIORATION [None]
  - LARGE INTESTINE CARCINOMA [None]
  - VOMITING [None]
